FAERS Safety Report 5637417-3 (Version None)
Quarter: 2008Q1

REPORT INFORMATION
  Report Type: 
  Country: None (occurrence: None)
  Receive Date: 20080225
  Receipt Date: 20080213
  Transmission Date: 20080703
  Serious: Yes (Other)
  Sender: FDA-Public Use
  Company Number: AU-PFIZER INC-2008014325

PATIENT
  Sex: Female

DRUGS (2)
  1. LYRICA [Suspect]
  2. DRUG, UNSPECIFIED [Concomitant]
     Indication: EPILEPSY

REACTIONS (2)
  - AGGRESSION [None]
  - PHYSICAL ASSAULT [None]
